FAERS Safety Report 9465505 (Version 1)
Quarter: 2013Q3

REPORT INFORMATION
  Report Type: Spontaneous
  Country: US (occurrence: US)
  Receive Date: 20130820
  Receipt Date: 20130820
  Transmission Date: 20140515
  Serious: Yes (Hospitalization, Other)
  Sender: FDA-Public Use
  Company Number: US-BRISTOL-MYERS SQUIBB COMPANY-19178094

PATIENT
  Age: 69 Year
  Sex: Male
  Weight: 71.2 kg

DRUGS (1)
  1. YERVOY [Suspect]
     Indication: MALIGNANT MELANOMA
     Dates: end: 201306

REACTIONS (4)
  - Brain neoplasm [Unknown]
  - Cystitis haemorrhagic [Unknown]
  - Prostate infection [Unknown]
  - Malignant neoplasm progression [Unknown]
